FAERS Safety Report 4808303-3 (Version None)
Quarter: 2005Q4

REPORT INFORMATION
  Report Type: 
  Country: None (occurrence: None)
  Receive Date: 20051021
  Receipt Date: 20040615
  Transmission Date: 20060501
  Serious: Yes (Other)
  Sender: FDA-Public Use
  Company Number: EWC040639651

PATIENT
  Age: 26 Year
  Sex: Male

DRUGS (1)
  1. ZYPREXA [Suspect]
     Indication: SCHIZOPHRENIA, PARANOID TYPE
     Dosage: 7.5 MG/1
     Dates: start: 19990101, end: 20040101

REACTIONS (1)
  - DEEP VEIN THROMBOSIS [None]
